FAERS Safety Report 6633889-6 (Version None)
Quarter: 2010Q1

REPORT INFORMATION
  Report Type: 
  Country: None (occurrence: None)
  Receive Date: 20100309
  Receipt Date: 20100225
  Transmission Date: 20100710
  Serious: Yes (Hospitalization)
  Sender: FDA-Public Use
  Company Number: 2007-01577

PATIENT
  Age: 40 Year
  Sex: Male
  Weight: 80 kg

DRUGS (9)
  1. VELCADE [Suspect]
     Indication: T-CELL LYMPHOMA
     Dosage: 3.00 MG, INTRAVENOUS
     Route: 042
     Dates: start: 20070326, end: 20070511
  2. DOXORUBICIN HCL [Suspect]
     Indication: T-CELL LYMPHOMA
     Dosage: 150.00 MG, INTRAVENOUS
     Route: 042
     Dates: start: 20070326, end: 20070511
  3. CYCLOPHOSPHAMIDE [Suspect]
     Indication: T-CELL LYMPHOMA
     Dosage: 2400.00 MG, INTRAVENOUS
     Route: 042
     Dates: start: 20070326, end: 20070511
  4. ELDISINE [Suspect]
     Indication: T-CELL LYMPHOMA
     Dosage: 4.00 MG, INTRAVENOUS
     Route: 042
     Dates: start: 20070326, end: 20070511
  5. BLEOMYCIN SULFATE [Suspect]
     Indication: T-CELL LYMPHOMA
     Dosage: 10.00 MG, INTRAVENOUS
     Route: 042
     Dates: start: 20070326, end: 20070511
  6. PREDNISONE [Suspect]
     Indication: T-CELL LYMPHOMA
     Dosage: 80.00 MG
     Dates: start: 20070326, end: 20070511
  7. GRANOCYTE 13-34 (LENOGRASTIM) INJECTION [Suspect]
     Indication: T-CELL LYMPHOMA
     Dosage: 263.00 UG, SUBCUTANEOUS
     Route: 058
     Dates: start: 20070401, end: 20070511
  8. BACTRIM [Suspect]
     Indication: T-CELL LYMPHOMA
     Dosage: 400.00 MG, ORAL
     Route: 048
     Dates: start: 20070326, end: 20070511
  9. VALACYCLOVIR HCL [Suspect]
     Indication: T-CELL LYMPHOMA
     Dosage: 200.00 MG, ORAL
     Route: 048
     Dates: start: 20070326, end: 20070511

REACTIONS (5)
  - FEBRILE NEUTROPENIA [None]
  - INADEQUATE DIET [None]
  - MUCOSAL INFLAMMATION [None]
  - NEUROPATHY PERIPHERAL [None]
  - WEIGHT DECREASED [None]
